FAERS Safety Report 9935180 (Version 4)
Quarter: 2014Q2

REPORT INFORMATION
  Report Type: Spontaneous
  Country: US (occurrence: US)
  Receive Date: 20140228
  Receipt Date: 20140512
  Transmission Date: 20141212
  Serious: No
  Sender: FDA-Public Use
  Company Number: US-JNJFOC-20140208857

PATIENT
  Age: 35 Year
  Sex: Female
  Weight: 120.2 kg

DRUGS (3)
  1. INVEGA SUSTENNA [Suspect]
     Indication: SCHIZOPHRENIA
     Route: 030
     Dates: start: 20140129
  2. INVEGA SUSTENNA [Suspect]
     Indication: SCHIZOPHRENIA
     Route: 030
     Dates: start: 201401
  3. INVEGA [Concomitant]
     Indication: SCHIZOPHRENIA
     Route: 048

REACTIONS (3)
  - Injection site mass [Recovering/Resolving]
  - Drug ineffective [Unknown]
  - Injection site swelling [Recovered/Resolved]
